FAERS Safety Report 20997816 (Version 1)
Quarter: 2022Q2

REPORT INFORMATION
  Report Type: Spontaneous
  Country: US (occurrence: US)
  Receive Date: 20220623
  Receipt Date: 20220623
  Transmission Date: 20220721
  Serious: No
  Sender: FDA-Public Use
  Company Number: US-SUNOVION-2022SUN001825

PATIENT
  Age: 17 Year
  Sex: Female

DRUGS (1)
  1. LATUDA [Suspect]
     Active Substance: LURASIDONE HYDROCHLORIDE
     Indication: Major depression
     Dosage: 20 MG, QD
     Route: 048
     Dates: start: 20220408

REACTIONS (7)
  - Ageusia [Unknown]
  - Fall [Unknown]
  - Dysphagia [Unknown]
  - Dizziness [Unknown]
  - Dry mouth [Unknown]
  - Vomiting [Unknown]
  - Off label use [Unknown]

NARRATIVE: CASE EVENT DATE: 20220411
